FAERS Safety Report 9919599 (Version 2)
Quarter: 2014Q1

REPORT INFORMATION
  Report Type: Spontaneous
  Country: US (occurrence: US)
  Receive Date: 20140224
  Receipt Date: 20140326
  Transmission Date: 20141002
  Serious: Yes (Other)
  Sender: FDA-Public Use
  Company Number: US-TEVA-464198USA

PATIENT
  Age: 29 Year
  Sex: Female
  Weight: 48.12 kg

DRUGS (3)
  1. PARAGARD 380A [Suspect]
     Indication: CONTRACEPTION
     Route: 015
     Dates: start: 20131010, end: 20140307
  2. PARAGARD 380A [Suspect]
     Route: 015
     Dates: start: 20140307
  3. LEXAPRO [Concomitant]
     Indication: DEPRESSION
     Route: 048

REACTIONS (1)
  - Device dislocation [Recovered/Resolved]
